FAERS Safety Report 6337544-1 (Version None)
Quarter: 2009Q3

REPORT INFORMATION
  Report Type: 
  Country: None (occurrence: None)
  Receive Date: 20090902
  Receipt Date: 20090826
  Transmission Date: 20100115
  Serious: Yes (Hospitalization)
  Sender: FDA-Public Use
  Company Number: PHHY2009DE36648

PATIENT
  Sex: Male

DRUGS (3)
  1. SANDOSTATIN LAR [Suspect]
     Dosage: UNK
     Dates: start: 20080301
  2. SANDOSTATIN [Suspect]
     Dosage: 1000 UG, UNK
     Route: 058
  3. SANDOSTATIN [Suspect]
     Dosage: 2X250 UG/DAY

REACTIONS (2)
  - HEPATIC ENZYME INCREASED [None]
  - LIPASE INCREASED [None]
